FAERS Safety Report 11421087 (Version 1)
Quarter: 2015Q3

REPORT INFORMATION
  Report Type: Report from Study
  Country: US (occurrence: US)
  Receive Date: 20150826
  Receipt Date: 20150826
  Transmission Date: 20151125
  Serious: No
  Sender: FDA-Public Use
  Company Number: US-009507513-1508USA010231

PATIENT
  Age: 34 Year
  Weight: 93.88 kg

DRUGS (1)
  1. IMPLANON [Suspect]
     Active Substance: ETONOGESTREL
     Dosage: UNK
     Dates: start: 20120829, end: 20150820

REACTIONS (2)
  - Hepatic enzyme increased [Unknown]
  - Medical device removal [Unknown]

NARRATIVE: CASE EVENT DATE: 20150820
